FAERS Safety Report 9709664 (Version 2)
Quarter: 2014Q1

REPORT INFORMATION
  Report Type: Spontaneous
  Country: DE (occurrence: DE)
  Receive Date: 20131126
  Receipt Date: 20140210
  Transmission Date: 20141002
  Serious: Yes (Life-Threatening)
  Sender: FDA-Public Use
  Company Number: PHHY2013DE135314

PATIENT
  Sex: 0

DRUGS (1)
  1. TASIGNA [Suspect]
     Dosage: 800 MG, DAILY

REACTIONS (1)
  - Arrhythmia [Unknown]
